FAERS Safety Report 10371694 (Version 1)
Quarter: 2014Q3

REPORT INFORMATION
  Report Type: Spontaneous
  Country: US (occurrence: None)
  Receive Date: 20140807
  Receipt Date: 20140807
  Transmission Date: 20150326
  Serious: Yes (Other)
  Sender: FDA-Public Use
  Company Number: None

PATIENT
  Age: 38 Year
  Sex: Male
  Weight: 59.88 kg

DRUGS (3)
  1. GATTEX [Suspect]
     Active Substance: TEDUGLUTIDE\WATER
     Indication: SHORT-BOWEL SYNDROME
     Dosage: 30 ML, DAILY IN EVENING, SUBCUTANEOUS
     Route: 058
     Dates: start: 20140716
  2. 3 L LACTATED TINGERS IV EVERY NOC [Concomitant]
  3. PARENTERAL NUTRITION AT NOC [Concomitant]

REACTIONS (1)
  - Gastrointestinal stoma complication [None]

NARRATIVE: CASE EVENT DATE: 20140716
